FAERS Safety Report 17674293 (Version 2)
Quarter: 2020Q2

REPORT INFORMATION
  Report Type: Spontaneous
  Country: US (occurrence: US)
  Receive Date: 20200416
  Receipt Date: 20200422
  Transmission Date: 20200714
  Serious: Yes (Death, Other)
  Sender: FDA-Public Use
  Company Number: US-HTU-2020US020434

PATIENT
  Age: 80 Year
  Sex: Male

DRUGS (5)
  1. PALONOSETRON HYDROCHLORIDE. [Suspect]
     Active Substance: PALONOSETRON HYDROCHLORIDE
     Indication: PROPHYLAXIS OF NAUSEA AND VOMITING
     Dosage: UNK, UNKNOWN
     Route: 042
     Dates: start: 20200217, end: 20200217
  2. FOSAPREPITANT [Suspect]
     Active Substance: FOSAPREPITANT
     Indication: PREMEDICATION
     Dosage: UNK, UNKNOWN
     Route: 042
     Dates: start: 20200217, end: 20200217
  3. LEUCOVORIN                         /00566701/ [Suspect]
     Active Substance: LEUCOVORIN
     Dosage: UNK, UNKNOWN
     Route: 042
     Dates: start: 20200217
  4. OXALIPLATIN. [Suspect]
     Active Substance: OXALIPLATIN
     Dosage: UNK, UNKNOWN
     Route: 042
     Dates: start: 20200217
  5. DEXAMETHASONE. [Suspect]
     Active Substance: DEXAMETHASONE
     Indication: PREMEDICATION
     Dosage: UNK, UNKNOWN
     Route: 042
     Dates: start: 20200217, end: 20200217

REACTIONS (8)
  - Blood pressure immeasurable [Fatal]
  - Retching [Unknown]
  - Slow response to stimuli [Fatal]
  - Hyperhidrosis [Unknown]
  - Dyspnoea [Fatal]
  - Oxygen saturation decreased [Fatal]
  - Pallor [Unknown]
  - Tachycardia [Fatal]

NARRATIVE: CASE EVENT DATE: 20200217
